FAERS Safety Report 16301934 (Version 1)
Quarter: 2019Q2

REPORT INFORMATION
  Report Type: Spontaneous
  Country: GB (occurrence: GB)
  Receive Date: 20190512
  Receipt Date: 20190512
  Transmission Date: 20190711
  Serious: Yes (Death, Other)
  Sender: FDA-Public Use
  Company Number: PHHY2019GB106406

PATIENT
  Sex: Female

DRUGS (25)
  1. CISPLATIN. [Suspect]
     Active Substance: CISPLATIN
     Indication: ENDOMETRIAL NEOPLASM
  2. VINCRISTINE [Suspect]
     Active Substance: VINCRISTINE
     Indication: METASTASIS
  3. BLEOMYCIN HYDROCHLORIDE [Suspect]
     Active Substance: BLEOMYCIN HYDROCHLORIDE
     Indication: METASTASIS
     Dosage: UNK
     Route: 065
  4. LASTET [Suspect]
     Active Substance: ETOPOSIDE
     Indication: OVARIAN GERM CELL TUMOUR
     Dosage: 100 MG, UNK (/5 ML)
     Route: 065
  5. LASTET [Suspect]
     Active Substance: ETOPOSIDE
     Indication: METASTASES TO CENTRAL NERVOUS SYSTEM
  6. CARBOPLATIN. [Suspect]
     Active Substance: CARBOPLATIN
     Indication: ENDOMETRIAL NEOPLASM
     Route: 065
  7. CISPLATIN. [Suspect]
     Active Substance: CISPLATIN
     Indication: EXTRAGONADAL PRIMARY GERM CELL TUMOUR MIXED
  8. VINCRISTINE [Suspect]
     Active Substance: VINCRISTINE
     Indication: EXTRAGONADAL PRIMARY GERM CELL TUMOUR MIXED
     Dosage: INJECTION
     Route: 065
  9. BLEOMYCIN HYDROCHLORIDE [Suspect]
     Active Substance: BLEOMYCIN HYDROCHLORIDE
     Indication: ENDOMETRIAL NEOPLASM
  10. LASTET [Suspect]
     Active Substance: ETOPOSIDE
     Indication: EXTRAGONADAL PRIMARY GERM CELL TUMOUR MIXED
  11. METHOTREXATE. [Suspect]
     Active Substance: METHOTREXATE
     Indication: METASTASIS
  12. CARBOPLATIN. [Suspect]
     Active Substance: CARBOPLATIN
     Indication: EXTRAGONADAL PRIMARY GERM CELL TUMOUR MIXED
  13. CISPLATIN. [Suspect]
     Active Substance: CISPLATIN
     Indication: METASTASES TO CENTRAL NERVOUS SYSTEM
     Dosage: UNK
     Route: 065
  14. CISPLATIN. [Suspect]
     Active Substance: CISPLATIN
     Indication: OVARIAN GERM CELL TUMOUR
  15. VINCRISTINE [Suspect]
     Active Substance: VINCRISTINE
     Indication: METASTASES TO CENTRAL NERVOUS SYSTEM
  16. BLEOMYCIN HYDROCHLORIDE [Suspect]
     Active Substance: BLEOMYCIN HYDROCHLORIDE
     Indication: OVARIAN GERM CELL TUMOUR
  17. BLEOMYCIN HYDROCHLORIDE [Suspect]
     Active Substance: BLEOMYCIN HYDROCHLORIDE
     Indication: METASTASES TO CENTRAL NERVOUS SYSTEM
  18. METHOTREXATE. [Suspect]
     Active Substance: METHOTREXATE
     Indication: METASTASES TO CENTRAL NERVOUS SYSTEM
     Dosage: UNK
     Route: 037
  19. CISPLATIN. [Suspect]
     Active Substance: CISPLATIN
     Indication: METASTASIS
  20. VINCRISTINE [Suspect]
     Active Substance: VINCRISTINE
     Indication: ENDOMETRIAL NEOPLASM
  21. LASTET [Suspect]
     Active Substance: ETOPOSIDE
     Indication: METASTASIS
  22. VINCRISTINE [Suspect]
     Active Substance: VINCRISTINE
     Indication: OVARIAN GERM CELL TUMOUR
  23. CARBOPLATIN. [Suspect]
     Active Substance: CARBOPLATIN
     Indication: OVARIAN GERM CELL TUMOUR
  24. BLEOMYCIN HYDROCHLORIDE [Suspect]
     Active Substance: BLEOMYCIN HYDROCHLORIDE
     Indication: EXTRAGONADAL PRIMARY GERM CELL TUMOUR MIXED
  25. LASTET [Suspect]
     Active Substance: ETOPOSIDE
     Indication: ENDOMETRIAL NEOPLASM

REACTIONS (8)
  - Acute lymphocytic leukaemia [Fatal]
  - Product use in unapproved indication [Unknown]
  - Renal injury [Unknown]
  - Pulmonary toxicity [Unknown]
  - Tinnitus [Unknown]
  - Cardiac failure [Unknown]
  - Deafness [Unknown]
  - Neuropathy peripheral [Unknown]
